FAERS Safety Report 5356739-7 (Version None)
Quarter: 2007Q2

REPORT INFORMATION
  Report Type: 
  Country: None (occurrence: None)
  Receive Date: 20070614
  Receipt Date: 20060504
  Transmission Date: 20071010
  Serious: No
  Sender: FDA-Public Use
  Company Number: US-ASTRAZENECA-2006UW08834

PATIENT
  Age: 70 Year
  Sex: Male

DRUGS (3)
  1. ATACAND [Suspect]
     Indication: HYPERTENSION
     Route: 048
  2. VERAPAMIL [Concomitant]
  3. LASIX [Concomitant]

REACTIONS (1)
  - RASH MACULO-PAPULAR [None]
